FAERS Safety Report 10203777 (Version 1)
Quarter: 2014Q2

REPORT INFORMATION
  Report Type: Spontaneous
  Country: BR (occurrence: BR)
  Receive Date: 20140529
  Receipt Date: 20140529
  Transmission Date: 20141212
  Serious: Yes (Other)
  Sender: FDA-Public Use
  Company Number: BR-ELI_LILLY_AND_COMPANY-BR201405006686

PATIENT
  Age: 67 Year
  Sex: Female
  Weight: 79 kg

DRUGS (8)
  1. HUMALOG [Suspect]
     Indication: TYPE 2 DIABETES MELLITUS
     Dosage: UNK, TID
     Route: 058
  2. LANTUS [Concomitant]
     Indication: DIABETES MELLITUS
     Dosage: 90 IU, BID
     Route: 065
  3. DAPAGLIFLOZIN [Concomitant]
     Indication: DIABETES MELLITUS
     Dosage: 10 MG, QD
     Route: 065
  4. GINKGO BILOBA [Concomitant]
     Dosage: UNK, QD
     Route: 065
  5. ENALAPRIL [Concomitant]
     Indication: BLOOD PRESSURE ABNORMAL
     Dosage: 10 MG, BID
     Route: 065
  6. PRESSAT [Concomitant]
     Indication: BLOOD PRESSURE ABNORMAL
     Dosage: 2.5 MG, QD
     Route: 065
  7. NATRILIX                           /00340101/ [Concomitant]
     Indication: BLOOD PRESSURE ABNORMAL
     Dosage: 2.5 MG, QD
     Route: 065
  8. LINAGLIPTIN [Concomitant]
     Indication: PRODUCT USED FOR UNKNOWN INDICATION
     Dosage: 5 MG, QD
     Route: 065

REACTIONS (3)
  - Eye haemorrhage [Recovering/Resolving]
  - Visual acuity reduced [Recovering/Resolving]
  - Diabetic neuropathy [Recovering/Resolving]
